FAERS Safety Report 8763266 (Version 1)
Quarter: 2012Q4

REPORT INFORMATION
  Report Type: Spontaneous
  Country: US (occurrence: None)
  Receive Date: 20120831
  Receipt Date: 20120831
  Transmission Date: 20130627
  Serious: Yes (Death, Other)
  Sender: FDA-Public Use
  Company Number: None

PATIENT
  Age: 32 Year
  Sex: Female

DRUGS (1)
  1. MISOPROSTOL -CYTOTEC [Suspect]
     Indication: FAILED MECHANICAL INDUCTION OF LABOR
     Route: 067

REACTIONS (4)
  - Uterine rupture [None]
  - Pain [None]
  - Exposure during pregnancy [None]
  - Caesarean section [None]
